FAERS Safety Report 7319947-1 (Version None)
Quarter: 2011Q1

REPORT INFORMATION
  Report Type: 
  Country: None (occurrence: None)
  Receive Date: 20110228
  Receipt Date: 20101220
  Transmission Date: 20110831
  Serious: No
  Sender: FDA-Public Use
  Company Number: A0901054A

PATIENT

DRUGS (2)
  1. PRIMIDONE [Suspect]
     Route: 065
  2. LAMICTAL [Suspect]
     Route: 048

REACTIONS (1)
  - TREPONEMA TEST POSITIVE [None]
